FAERS Safety Report 4335556-0 (Version None)
Quarter: 2004Q2

REPORT INFORMATION
  Report Type: 
  Country: None (occurrence: None)
  Receive Date: 20040406
  Receipt Date: 20040326
  Transmission Date: 20050107
  Serious: No
  Sender: FDA-Public Use
  Company Number: 04P-163-0254926-00

PATIENT
  Age: 67 Year
  Sex: Female
  Weight: 104.3273 kg

DRUGS (9)
  1. HUMIRA [Suspect]
     Indication: FAMILIAL MEDITERRANEAN FEVER
     Dosage: 40 MG, 1 IN 2 WK; SUBCUTAENOUS
     Route: 058
     Dates: start: 20040224
  2. CO-DIOVAN [Concomitant]
  3. COLCHICINE [Concomitant]
  4. GLIMEPIRIDE [Concomitant]
  5. AMILORIDE [Concomitant]
  6. OXYCODONE [Concomitant]
  7. FOLIC ACID [Concomitant]
  8. ZETIA [Concomitant]
  9. PAROXETINE HCL [Concomitant]

REACTIONS (5)
  - ABDOMINAL PAIN [None]
  - ABDOMINAL PAIN UPPER [None]
  - DIARRHOEA [None]
  - NAUSEA [None]
  - VOMITING [None]
